FAERS Safety Report 6724163-8 (Version None)
Quarter: 2010Q2

REPORT INFORMATION
  Report Type: 
  Country: None (occurrence: None)
  Receive Date: 20100513
  Receipt Date: 20100506
  Transmission Date: 20101027
  Serious: Yes (Other)
  Sender: FDA-Public Use
  Company Number: CA-ALLERGAN-1006099US

PATIENT
  Sex: Female

DRUGS (1)
  1. BOTOX [Suspect]
     Indication: BLEPHAROSPASM
     Dosage: UNK
     Dates: start: 20100429, end: 20100429

REACTIONS (3)
  - INJECTION SITE PAIN [None]
  - SWELLING FACE [None]
  - SWOLLEN TONGUE [None]
